FAERS Safety Report 21389169 (Version 1)
Quarter: 2022Q3

REPORT INFORMATION
  Report Type: Spontaneous
  Country: KR (occurrence: KR)
  Receive Date: 20220929
  Receipt Date: 20220929
  Transmission Date: 20221026
  Serious: Yes (Hospitalization)
  Sender: FDA-Public Use
  Company Number: KR-ORGANON-O2209KOR001510

PATIENT
  Age: 72 Year
  Sex: Female
  Weight: 60.4 kg

DRUGS (9)
  1. REMERON [Suspect]
     Active Substance: MIRTAZAPINE
     Indication: Depression
     Dosage: 30 MILLIGRAM, QD
     Dates: start: 20140528
  2. ASPIRIN [Concomitant]
     Active Substance: ASPIRIN
     Indication: Prophylaxis
     Dosage: 100 MILLIGRAM, QD
     Dates: start: 20110309
  3. CLONAZEPAM [Concomitant]
     Active Substance: CLONAZEPAM
     Indication: Depression
     Dosage: 0.5 MILLIGRAM, QD
     Dates: start: 20110309
  4. TRAZODONE HYDROCHLORIDE [Concomitant]
     Active Substance: TRAZODONE HYDROCHLORIDE
     Indication: Depression
     Dosage: 75 MILLIGRAM, QD
     Dates: start: 20110309
  5. PROPRANOLOL HYDROCHLORIDE [Concomitant]
     Active Substance: PROPRANOLOL HYDROCHLORIDE
     Indication: Depression
     Dosage: 20 MILLIGRAM, QD
     Dates: start: 20110309
  6. VENLAFAXINE HYDROCHLORIDE [Concomitant]
     Active Substance: VENLAFAXINE HYDROCHLORIDE
     Indication: Depression
     Dosage: 75 MILLIGRAM, QD
     Dates: start: 20111214
  7. MAGNESIUM HYDROXIDE [Concomitant]
     Active Substance: MAGNESIUM HYDROXIDE
     Indication: Prophylaxis
     Dosage: 500 MILLIGRAM, QD
     Dates: start: 20150902
  8. HYDROXYUREA [Concomitant]
     Active Substance: HYDROXYUREA
     Indication: Myelodysplastic syndrome unclassifiable
     Dosage: 500 MILLIGRAM, QD
     Dates: start: 20110824
  9. HYDROXYUREA [Concomitant]
     Active Substance: HYDROXYUREA
     Indication: Myeloproliferative neoplasm

REACTIONS (1)
  - Metastatic malignant melanoma [Recovered/Resolved]

NARRATIVE: CASE EVENT DATE: 20170905
